FAERS Safety Report 13718157 (Version 1)
Quarter: 2017Q3

REPORT INFORMATION
  Report Type: Spontaneous
  Country: US (occurrence: US)
  Receive Date: 20170705
  Receipt Date: 20170705
  Transmission Date: 20171127
  Serious: Yes (Hospitalization)
  Sender: FDA-Public Use
  Company Number: PHHY2017US092557

PATIENT
  Age: 42 Year
  Sex: Male

DRUGS (1)
  1. VANCOMYCIN [Suspect]
     Active Substance: VANCOMYCIN
     Indication: DIABETIC ULCER
     Route: 042

REACTIONS (3)
  - Rash macular [Recovered/Resolved]
  - Erythema multiforme [Recovered/Resolved]
  - Pruritus generalised [Recovered/Resolved]
